FAERS Safety Report 5654766-3 (Version None)
Quarter: 2008Q1

REPORT INFORMATION
  Report Type: 
  Country: None (occurrence: None)
  Receive Date: 20080307
  Receipt Date: 20071227
  Transmission Date: 20080703
  Serious: No
  Sender: FDA-Public Use
  Company Number: A0618934A

PATIENT
  Age: 71 Year
  Sex: Male

DRUGS (5)
  1. REQUIP [Suspect]
     Indication: RESTLESS LEGS SYNDROME
     Dosage: 1MG PER DAY
     Route: 048
     Dates: start: 20060601
  2. ZOCOR [Concomitant]
  3. CIPRO [Concomitant]
  4. ALLEGRA [Concomitant]
  5. FLAGYL [Concomitant]

REACTIONS (3)
  - DRUG INEFFECTIVE [None]
  - DYSKINESIA [None]
  - INSOMNIA [None]
